FAERS Safety Report 4698981-4 (Version None)
Quarter: 2005Q2

REPORT INFORMATION
  Report Type: 
  Country: None (occurrence: None)
  Receive Date: 20050622
  Receipt Date: 20050622
  Transmission Date: 20051028
  Serious: Yes (Hospitalization)
  Sender: FDA-Public Use
  Company Number: None

PATIENT
  Age: 30 Year
  Sex: Female
  Weight: 71 kg

DRUGS (1)
  1. PROGESTERONE IN OIL SUSPENSION/INJ [Suspect]
     Indication: IN VITRO FERTILISATION
     Dosage: 50 MG    DAILY   INTRAMUSCU
     Route: 030
     Dates: start: 20050513, end: 20050516

REACTIONS (2)
  - EOSINOPHILIC PNEUMONIA ACUTE [None]
  - WHITE BLOOD CELL COUNT INCREASED [None]
